FAERS Safety Report 4644642-7 (Version None)
Quarter: 2005Q2

REPORT INFORMATION
  Report Type: 
  Country: None (occurrence: None)
  Receive Date: 20050425
  Receipt Date: 20050425
  Transmission Date: 20051028
  Serious: Yes (Disabling)
  Sender: FDA-Public Use
  Company Number: None

PATIENT
  Sex: Female
  Weight: 54.4316 kg

DRUGS (2)
  1. ZOMETA [Suspect]
     Indication: BONE DISORDER
     Dosage: 1 MG   ONCE  MONTHLY
     Dates: start: 20031017, end: 20050301
  2. XELODA [Concomitant]

REACTIONS (1)
  - JAW DISORDER [None]
